FAERS Safety Report 12255659 (Version 1)
Quarter: 2016Q2

REPORT INFORMATION
  Report Type: Spontaneous
  Country: US (occurrence: None)
  Receive Date: 20160411
  Receipt Date: 20160411
  Transmission Date: 20160815
  Serious: Yes (Hospitalization)
  Sender: FDA-Public Use
  Company Number: None

PATIENT
  Age: 4 Year
  Sex: Female
  Weight: 20.41 kg

DRUGS (3)
  1. CEFDINIR. [Suspect]
     Active Substance: CEFDINIR
     Indication: STREPTOCOCCAL INFECTION
     Dates: start: 20151116, end: 20151119
  2. CEFDINIR. [Suspect]
     Active Substance: CEFDINIR
     Indication: SCARLET FEVER
     Dates: start: 20151116, end: 20151119
  3. CVS DINOSAUR DAILY VITAMINS [Concomitant]

REACTIONS (2)
  - Jaundice [None]
  - Rash [None]

NARRATIVE: CASE EVENT DATE: 20151119
